FAERS Safety Report 26189004 (Version 1)
Quarter: 2025Q4

REPORT INFORMATION
  Report Type: Spontaneous
  Country: JP (occurrence: JP)
  Receive Date: 20251223
  Receipt Date: 20251223
  Transmission Date: 20260118
  Serious: Yes (Other)
  Sender: GALDERMA
  Company Number: JP-GALDERMA-JP2025027105

PATIENT

DRUGS (1)
  1. NEMOLIZUMAB [Suspect]
     Active Substance: NEMOLIZUMAB
     Indication: Product used for unknown indication
     Dosage: 1 DOSAGE FORM
     Route: 058

REACTIONS (1)
  - Pemphigoid [Recovering/Resolving]
